FAERS Safety Report 5817192-X (Version None)
Quarter: 2008Q3

REPORT INFORMATION
  Report Type: 
  Country: None (occurrence: None)
  Receive Date: 20080722
  Receipt Date: 20080502
  Transmission Date: 20090109
  Serious: No
  Sender: FDA-Public Use
  Company Number: US-BAYER-200821719NA

PATIENT
  Sex: Female

DRUGS (3)
  1. MIRENA [Suspect]
     Indication: DRUG USE FOR UNKNOWN INDICATION
     Route: 015
     Dates: start: 20080320, end: 20080419
  2. MIRENA [Suspect]
     Route: 015
     Dates: start: 20080420, end: 20080420
  3. MIRENA [Suspect]
     Route: 015
     Dates: start: 20080420

REACTIONS (3)
  - INTRA-UTERINE CONTRACEPTIVE DEVICE EXPELLED [None]
  - UTERINE LEIOMYOMA [None]
  - VAGINAL HAEMORRHAGE [None]
